FAERS Safety Report 9737355 (Version 1)
Quarter: 2013Q4

REPORT INFORMATION
  Report Type: Spontaneous
  Country: US (occurrence: US)
  Receive Date: 20131206
  Receipt Date: 20131206
  Transmission Date: 20140711
  Serious: No
  Sender: FDA-Public Use
  Company Number: US-BIOGENIDEC-2013BI098430

PATIENT
  Sex: Male
  Weight: 61 kg

DRUGS (9)
  1. TECFIDERA [Suspect]
     Indication: PRODUCT USED FOR UNKNOWN INDICATION
     Route: 048
  2. TECFIDERA [Suspect]
     Indication: PRODUCT USED FOR UNKNOWN INDICATION
     Route: 048
  3. VITAMIN D [Concomitant]
  4. FISH OIL [Concomitant]
  5. BACLOFEN [Concomitant]
  6. OXYBUTYNIN [Concomitant]
  7. AZITHROMYCIN [Concomitant]
  8. CIPROFLOXACN [Concomitant]
  9. RITUXAN [Concomitant]

REACTIONS (3)
  - Urinary tract infection [Unknown]
  - Abdominal discomfort [Unknown]
  - Rash [Unknown]
